FAERS Safety Report 5802065-9 (Version None)
Quarter: 2008Q3

REPORT INFORMATION
  Report Type: 
  Country: None (occurrence: None)
  Receive Date: 20080707
  Receipt Date: 20080623
  Transmission Date: 20090109
  Serious: Yes (Other)
  Sender: FDA-Public Use
  Company Number: PHHY2008CN11820

PATIENT

DRUGS (1)
  1. SIMULECT [Suspect]
     Indication: BONE MARROW TRANSPLANT

REACTIONS (1)
  - CYSTITIS HAEMORRHAGIC [None]
